FAERS Safety Report 8462871-1 (Version None)
Quarter: 2012Q2

REPORT INFORMATION
  Report Type: 
  Country: None (occurrence: None)
  Receive Date: 20120625
  Receipt Date: 20120615
  Transmission Date: 20120825
  Serious: Yes (Other)
  Sender: FDA-Public Use
  Company Number: US-ASTRAZENECA-2012SE40736

PATIENT
  Age: 61 Year
  Sex: Female

DRUGS (3)
  1. OMEPRAZOLE [Suspect]
     Route: 048
  2. NEXIUM [Suspect]
     Route: 048
  3. CYMBALTA [Concomitant]

REACTIONS (10)
  - OFF LABEL USE [None]
  - DRUG DOSE OMISSION [None]
  - EUPHORIC MOOD [None]
  - OSTEOPOROSIS [None]
  - GASTRIC DISORDER [None]
  - DRUG INEFFECTIVE [None]
  - SLEEP APNOEA SYNDROME [None]
  - FIBROMYALGIA [None]
  - HIATUS HERNIA [None]
  - ABNORMAL DREAMS [None]
